FAERS Safety Report 6398182-8 (Version None)
Quarter: 2009Q4

REPORT INFORMATION
  Report Type: 
  Country: None (occurrence: None)
  Receive Date: 20091013
  Receipt Date: 20091005
  Transmission Date: 20100525
  Serious: Yes (Hospitalization, Other)
  Sender: FDA-Public Use
  Company Number: FR-BRISTOL-MYERS SQUIBB COMPANY-14808539

PATIENT
  Age: 58 Year
  Sex: Male

DRUGS (11)
  1. ORENCIA [Suspect]
     Indication: RHEUMATOID ARTHRITIS
     Dosage: 10 CYCLES
     Route: 042
     Dates: start: 20080901, end: 20090504
  2. FOSAVANCE [Concomitant]
  3. ESIDRIX [Concomitant]
  4. CORTANCYL [Concomitant]
  5. METHOTREXATE [Concomitant]
  6. SPECIAFOLDINE [Concomitant]
  7. MEGAMAG [Concomitant]
  8. FENOFIBRATE [Concomitant]
  9. CALTRATE [Concomitant]
  10. GLUCOPHAGE [Concomitant]
  11. JANUVIA [Concomitant]

REACTIONS (3)
  - HEPATIC STEATOSIS [None]
  - SALMONELLOSIS [None]
  - SIGMOIDITIS [None]
